FAERS Safety Report 6749782-4 (Version None)
Quarter: 2010Q2

REPORT INFORMATION
  Report Type: 
  Country: None (occurrence: None)
  Receive Date: 20100601
  Receipt Date: 20100517
  Transmission Date: 20101027
  Serious: Yes (Hospitalization, Other)
  Sender: FDA-Public Use
  Company Number: PHHY2010CN31242

PATIENT
  Age: 52 Year
  Sex: Male

DRUGS (1)
  1. SEBIVO [Suspect]
     Indication: HEPATITIS B
     Dosage: 600 MG, QD
     Route: 048
     Dates: end: 20100301

REACTIONS (27)
  - ANXIETY [None]
  - ARTERIOSCLEROSIS [None]
  - ASTHENIA [None]
  - BLOOD GLUCOSE INCREASED [None]
  - COGNITIVE DISORDER [None]
  - DECREASED APPETITE [None]
  - DEPRESSION [None]
  - ELECTROMYOGRAM ABNORMAL [None]
  - FAECES HARD [None]
  - FEELING ABNORMAL [None]
  - FEELING OF BODY TEMPERATURE CHANGE [None]
  - HEADACHE [None]
  - HYPERREFLEXIA [None]
  - HYPOAESTHESIA [None]
  - INTERVERTEBRAL DISC PROTRUSION [None]
  - IRRITABILITY [None]
  - MALAISE [None]
  - NEPHRITIS [None]
  - NEUROPATHY PERIPHERAL [None]
  - PAIN [None]
  - PAIN IN EXTREMITY [None]
  - PALPITATIONS [None]
  - PERIPHERAL ARTERIAL OCCLUSIVE DISEASE [None]
  - PERIPHERAL COLDNESS [None]
  - PERIPHERAL NERVE INJURY [None]
  - RHEUMATOID FACTOR INCREASED [None]
  - SOMNOLENCE [None]
